FAERS Safety Report 19072265 (Version 3)
Quarter: 2021Q2

REPORT INFORMATION
  Report Type: Report from Study
  Country: BR (occurrence: BR)
  Receive Date: 20210330
  Receipt Date: 20210528
  Transmission Date: 20210717
  Serious: Yes (Death, Hospitalization, Other)
  Sender: FDA-Public Use
  Company Number: BR-EMD SERONO-9228589

PATIENT
  Age: 61 Year
  Sex: Female

DRUGS (2)
  1. REBIF [Suspect]
     Active Substance: INTERFERON BETA-1A
     Indication: MULTIPLE SCLEROSIS
     Route: 058
     Dates: start: 20090304, end: 20210104
  2. BIO?MANGUINHOS BETAINTERFERONA 1A 44 MCG [Suspect]
     Active Substance: INTERFERON BETA-1A
     Indication: MULTIPLE SCLEROSIS
     Dosage: THERAPY START DATE: 05?JAN?2021
     Route: 058

REACTIONS (9)
  - Myocardial infarction [Unknown]
  - Rheumatic fever [Fatal]
  - Cardiac arrest [Fatal]
  - Hypertension [Fatal]
  - Diaphragmatic paralysis [Unknown]
  - Amyotrophic lateral sclerosis [Fatal]
  - Coronary artery disease [Fatal]
  - COVID-19 [Fatal]
  - Ischaemic cardiomyopathy [Fatal]

NARRATIVE: CASE EVENT DATE: 2017
